FAERS Safety Report 6628492-8 (Version None)
Quarter: 2010Q1

REPORT INFORMATION
  Report Type: 
  Country: None (occurrence: None)
  Receive Date: 20100311
  Receipt Date: 20100219
  Transmission Date: 20100710
  Serious: Yes (Hospitalization)
  Sender: FDA-Public Use
  Company Number: KR-ROCHE-661851

PATIENT
  Sex: Male
  Weight: 70.1 kg

DRUGS (26)
  1. MYCOPHENOLATE MOFETIL [Suspect]
     Route: 048
     Dates: start: 20090110, end: 20090110
  2. MYCOPHENOLATE MOFETIL [Suspect]
     Dosage: 500 MG (1X/DAY) IN THE MORNING AND 1000 MG (1X/DAY) IN THE EVENING
     Route: 048
     Dates: start: 20090111, end: 20090111
  3. MYCOPHENOLATE MOFETIL [Suspect]
     Route: 048
     Dates: start: 20090112, end: 20090224
  4. MYCOPHENOLATE MOFETIL [Suspect]
     Route: 048
     Dates: start: 20090225, end: 20090303
  5. MYCOPHENOLATE MOFETIL [Suspect]
     Route: 048
     Dates: start: 20090304, end: 20090310
  6. MYCOPHENOLATE MOFETIL [Suspect]
     Route: 048
     Dates: start: 20090311, end: 20090922
  7. MYCOPHENOLATE MOFETIL [Suspect]
     Route: 048
     Dates: start: 20090930, end: 20091001
  8. MYCOPHENOLATE MOFETIL [Suspect]
     Route: 048
     Dates: start: 20091002, end: 20091003
  9. MYCOPHENOLATE MOFETIL [Suspect]
     Route: 048
     Dates: start: 20091004
  10. MYCOPHENOLATE MOFETIL [Suspect]
     Route: 048
     Dates: start: 20100119, end: 20100122
  11. MYCOPHENOLATE MOFETIL [Suspect]
     Route: 048
     Dates: start: 20100122
  12. CYCLOSPORINE [Suspect]
     Route: 048
     Dates: start: 20090110, end: 20090713
  13. CYCLOSPORINE [Suspect]
     Route: 048
     Dates: start: 20090714, end: 20090922
  14. CYCLOSPORINE [Suspect]
     Route: 048
     Dates: start: 20090930, end: 20091001
  15. CYCLOSPORINE [Suspect]
     Route: 048
     Dates: start: 20091002
  16. CYCLOSPORINE [Suspect]
     Route: 048
     Dates: start: 20100119, end: 20100126
  17. CYCLOSPORINE [Suspect]
     Route: 048
     Dates: start: 20100127
  18. PREDNISOLONE [Concomitant]
     Dates: start: 20090110
  19. PREDNISOLONE [Concomitant]
     Dates: start: 20100119, end: 20100122
  20. PREDNISOLONE [Concomitant]
     Dates: start: 20100123, end: 20100126
  21. PREDNISOLONE [Concomitant]
     Dates: start: 20100127, end: 20100209
  22. PREDNISOLONE [Concomitant]
     Dates: start: 20100210
  23. PRITOR [Concomitant]
     Dates: start: 20090303
  24. BENZBROMARONE [Concomitant]
     Dates: start: 20090310
  25. HEXAMIDINE [Concomitant]
     Dates: start: 20090110
  26. MEPERIDINE HCL [Concomitant]
     Dates: start: 20100106, end: 20100106

REACTIONS (3)
  - BACTERAEMIA [None]
  - TRANSPLANT REJECTION [None]
  - URINARY TRACT INFECTION [None]
